FAERS Safety Report 7273707-9 (Version None)
Quarter: 2010Q4

REPORT INFORMATION
  Report Type: 
  Country: None (occurrence: None)
  Receive Date: 20101130
  Receipt Date: 20100728
  Transmission Date: 20110411
  Serious: Yes (Hospitalization)
  Sender: FDA-Public Use
  Company Number: 2010SP041118

PATIENT
  Age: 18 Year
  Sex: Female
  Weight: 49.8957 kg

DRUGS (3)
  1. NUVARING [Suspect]
     Indication: CONTRACEPTION
     Dates: start: 20060804, end: 20070224
  2. SYNTHROID [Concomitant]
  3. PLAN B [Concomitant]

REACTIONS (6)
  - HYPOTENSION [None]
  - SINUSITIS [None]
  - SUBCLAVIAN VEIN THROMBOSIS [None]
  - UPPER RESPIRATORY TRACT INFECTION [None]
  - VARICOSE VEIN [None]
  - VENOUS THROMBOSIS [None]
